FAERS Safety Report 15114131 (Version 1)
Quarter: 2018Q3

REPORT INFORMATION
  Report Type: Spontaneous
  Country: RS (occurrence: RS)
  Receive Date: 20180706
  Receipt Date: 20180706
  Transmission Date: 20181010
  Serious: Yes (Hospitalization)
  Sender: FDA-Public Use
  Company Number: RS-BAYER-2018-121025

PATIENT
  Age: 24 Year
  Sex: Female
  Weight: 60 kg

DRUGS (5)
  1. PREDNISOLONE. [Concomitant]
     Active Substance: PREDNISOLONE
  2. NADROPARIN [Concomitant]
     Active Substance: NADROPARIN
     Dosage: 2850 IU, UNK
  3. BISOPROLOL [Concomitant]
     Active Substance: BISOPROLOL
     Indication: HYPERTENSION
  4. ACETYLSALICYLIC ACID (} 100 MG) [Suspect]
     Active Substance: ASPIRIN
     Indication: TAKAYASU^S ARTERITIS
  5. METHYLDOPA. [Concomitant]
     Active Substance: METHYLDOPA
     Indication: HYPERTENSION

REACTIONS (6)
  - Off label use [None]
  - Maternal exposure during pregnancy [None]
  - Cardiac failure [None]
  - Product use in unapproved indication [None]
  - Premature delivery [None]
  - Caesarean section [None]
